FAERS Safety Report 6460300-0 (Version None)
Quarter: 2009Q4

REPORT INFORMATION
  Report Type: 
  Country: None (occurrence: None)
  Receive Date: 20091130
  Receipt Date: 20091119
  Transmission Date: 20100525
  Serious: Yes (Hospitalization, Other)
  Sender: FDA-Public Use
  Company Number: PHHY2009PL49687

PATIENT
  Age: 19 Year
  Sex: Female

DRUGS (2)
  1. TEGRETOL [Suspect]
     Indication: BORDERLINE PERSONALITY DISORDER
     Dosage: 400 MG PER DAY
  2. TEGRETOL [Suspect]
     Dosage: 800 MG PER DAY

REACTIONS (32)
  - APHTHOUS STOMATITIS [None]
  - ASTHENIA [None]
  - BLISTER [None]
  - BLOOD AMYLASE INCREASED [None]
  - CHAPPED LIPS [None]
  - CONJUNCTIVAL ADHESION [None]
  - COUGH [None]
  - DERMATITIS [None]
  - DYSPHAGIA [None]
  - ERYTHEMA [None]
  - EYELID OEDEMA [None]
  - FACE OEDEMA [None]
  - HALLUCINATION [None]
  - HYPERSENSITIVITY [None]
  - INFLAMMATION [None]
  - LACRIMATION INCREASED [None]
  - LIVIDITY [None]
  - MEASLES [None]
  - MOOD ALTERED [None]
  - MUMPS [None]
  - OCULAR HYPERAEMIA [None]
  - ORAL DISORDER [None]
  - OROPHARYNGEAL PAIN [None]
  - PHARYNGITIS [None]
  - PHOTOPHOBIA [None]
  - PRURITUS [None]
  - PYREXIA [None]
  - RASH PAPULAR [None]
  - SKIN DISORDER [None]
  - TONSILLAR HYPERTROPHY [None]
  - UPPER RESPIRATORY TRACT INFECTION [None]
  - URINE AMYLASE INCREASED [None]
